FAERS Safety Report 9360874 (Version 1)
Quarter: 2013Q2

REPORT INFORMATION
  Report Type: Spontaneous
  Country: GB (occurrence: GB)
  Receive Date: 20130621
  Receipt Date: 20130621
  Transmission Date: 20140414
  Serious: Yes (Other)
  Sender: FDA-Public Use
  Company Number: GB-ABBOTT-13P-167-1104589-00

PATIENT
  Age: 39 Year
  Sex: Female

DRUGS (1)
  1. HUMIRA [Suspect]
     Indication: RHEUMATOID ARTHRITIS
     Dosage: FORTNIGHTLY
     Route: 058

REACTIONS (4)
  - Device malfunction [Unknown]
  - Incorrect dose administered [Unknown]
  - Overdose [Unknown]
  - Device malfunction [Unknown]
